FAERS Safety Report 6223790-4 (Version None)
Quarter: 2009Q2

REPORT INFORMATION
  Report Type: 
  Country: None (occurrence: None)
  Receive Date: 20090611
  Receipt Date: 20090310
  Transmission Date: 20091009
  Serious: No
  Sender: FDA-Public Use
  Company Number: US-ABBOTT-09P-163-0558636-00

PATIENT
  Sex: Female
  Weight: 56.75 kg

DRUGS (3)
  1. HUMIRA [Suspect]
     Indication: PSORIATIC ARTHROPATHY
     Dates: start: 20090216
  2. HUMIRA [Suspect]
     Indication: PSORIASIS
  3. PAIN MEDICATION [Concomitant]
     Indication: ARTHRITIS

REACTIONS (8)
  - ABDOMINAL PAIN UPPER [None]
  - DEPRESSION [None]
  - GAIT DISTURBANCE [None]
  - INJECTION SITE PAIN [None]
  - MUSCLE SPASMS [None]
  - PAIN IN EXTREMITY [None]
  - RASH [None]
  - WOUND SECRETION [None]
